FAERS Safety Report 6853638-6 (Version None)
Quarter: 2010Q3

REPORT INFORMATION
  Report Type: 
  Country: None (occurrence: None)
  Receive Date: 20100717
  Receipt Date: 20080123
  Transmission Date: 20110219
  Serious: Yes (Other)
  Sender: FDA-Public Use
  Company Number: US-PFIZER INC-2007104072

PATIENT
  Sex: Female
  Weight: 49 kg

DRUGS (8)
  1. CHANTIX [Suspect]
     Indication: SMOKING CESSATION THERAPY
     Route: 048
     Dates: start: 20071020, end: 20071101
  2. CEPHALEXIN [Concomitant]
  3. TRILEPTAL [Concomitant]
  4. GABAPENTIN [Concomitant]
  5. LYRICA [Concomitant]
     Indication: NECK PAIN
  6. CYMBALTA [Concomitant]
     Indication: DEPRESSION
  7. LORAZEPAM [Concomitant]
  8. FEXOFENADINE [Concomitant]
     Indication: HYPERSENSITIVITY

REACTIONS (5)
  - FEELING ABNORMAL [None]
  - MOOD ALTERED [None]
  - MOOD SWINGS [None]
  - SUICIDAL IDEATION [None]
  - TOBACCO USER [None]
